FAERS Safety Report 9748728 (Version 2)
Quarter: 2013Q4

REPORT INFORMATION
  Report Type: Spontaneous
  Country: IE (occurrence: IE)
  Receive Date: 20131212
  Receipt Date: 20131219
  Transmission Date: 20140711
  Serious: Yes (Hospitalization)
  Sender: FDA-Public Use
  Company Number: PHHY2013IE144413

PATIENT
  Age: 40 Year
  Sex: Female

DRUGS (5)
  1. TEGRETOL [Suspect]
     Indication: TRIGEMINAL NEURALGIA
     Dosage: 100 MG, DAILY
     Route: 048
     Dates: start: 20131101
  2. ELTROXIN [Concomitant]
     Indication: HYPOTHYROIDISM
     Dosage: 50 UG, DAILY
     Route: 048
     Dates: start: 20110906
  3. ELTROXIN [Concomitant]
     Dosage: UNK
  4. IBUPROFEN [Concomitant]
     Indication: ANALGESIC THERAPY
     Dosage: 1 DF, TID
     Route: 048
     Dates: start: 20131101
  5. SOLPADOL [Concomitant]
     Indication: ANALGESIC THERAPY
     Dosage: 2 DF, TID
     Route: 048
     Dates: start: 20131113

REACTIONS (4)
  - Abdominal distension [Unknown]
  - Trigeminal neuralgia [Unknown]
  - Drug dispensing error [Unknown]
  - Expired drug administered [Unknown]
